FAERS Safety Report 4596291-7 (Version None)
Quarter: 2005Q1

REPORT INFORMATION
  Report Type: 
  Country: None (occurrence: None)
  Receive Date: 20050302
  Receipt Date: 20050218
  Transmission Date: 20050727
  Serious: Yes (Hospitalization)
  Sender: FDA-Public Use
  Company Number: DE-MERCK-0502DEU00174

PATIENT
  Age: 65 Year
  Sex: Female

DRUGS (4)
  1. VIOXX [Suspect]
     Indication: ANALGESIC THERAPY
     Route: 048
     Dates: start: 20030714, end: 20031019
  2. VIOXX [Suspect]
     Route: 048
     Dates: start: 20031019, end: 20040801
  3. FOSAMAX [Concomitant]
     Route: 048
  4. DIPYRONE [Concomitant]
     Route: 048
     Dates: start: 20031027

REACTIONS (5)
  - ANGINA PECTORIS [None]
  - CARDIAC FAILURE [None]
  - PELVIC FRACTURE [None]
  - PRESCRIBED OVERDOSE [None]
  - TACHYCARDIA [None]
